FAERS Safety Report 16202520 (Version 1)
Quarter: 2019Q2

REPORT INFORMATION
  Report Type: Spontaneous
  Country: US (occurrence: US)
  Receive Date: 20190416
  Receipt Date: 20190416
  Transmission Date: 20190711
  Serious: No
  Sender: FDA-Public Use
  Company Number: US-AMGEN-USASP2019058154

PATIENT
  Age: 58 Year
  Sex: Female

DRUGS (1)
  1. ENBREL [Suspect]
     Active Substance: ETANERCEPT
     Indication: RHEUMATOID ARTHRITIS
     Dosage: 50 MILLIGRAM, QWK
     Route: 065
     Dates: start: 201903

REACTIONS (11)
  - Injection site erythema [Unknown]
  - Diarrhoea [Unknown]
  - Insomnia [Unknown]
  - Sluggishness [Unknown]
  - Injection site pain [Unknown]
  - Fatigue [Unknown]
  - Injection site warmth [Unknown]
  - Dizziness [Unknown]
  - Dysstasia [Unknown]
  - Vomiting [Unknown]
  - Hot flush [Unknown]

NARRATIVE: CASE EVENT DATE: 2019
